FAERS Safety Report 7417952-8 (Version None)
Quarter: 2011Q2

REPORT INFORMATION
  Report Type: 
  Country: None (occurrence: None)
  Receive Date: 20110415
  Receipt Date: 20110406
  Transmission Date: 20111010
  Serious: Yes (Life-Threatening, Hospitalization)
  Sender: FDA-Public Use
  Company Number: GB-ROCHE-625197

PATIENT
  Sex: Male

DRUGS (9)
  1. MYCOPHENOLATE MOFETIL [Suspect]
     Route: 065
     Dates: start: 20081212, end: 20081220
  2. COTRIM [Concomitant]
  3. MYCOPHENOLATE MOFETIL [Suspect]
     Indication: ANTI-NEUTROPHIL CYTOPLASMIC ANTIBODY POSITIVE VASCULITIS
     Route: 065
     Dates: start: 20071030
  4. ALENDRONATE SODIUM [Concomitant]
  5. AMPHOTERICIN B [Concomitant]
  6. PREDNISOLONE [Concomitant]
  7. PREDNISOLONE [Concomitant]
  8. LANSOPRAZOLE [Concomitant]
  9. CALCICHEW D3 [Concomitant]

REACTIONS (5)
  - PULMONARY HAEMORRHAGE [None]
  - PURPURA [None]
  - STEROID THERAPY [None]
  - VASCULITIS [None]
  - DISEASE RECURRENCE [None]
